FAERS Safety Report 24858812 (Version 2)
Quarter: 2025Q1

REPORT INFORMATION
  Report Type: Spontaneous
  Country: US (occurrence: US)
  Receive Date: 20250118
  Receipt Date: 20250131
  Transmission Date: 20250409
  Serious: No
  Sender: ROCHE
  Company Number: US-ROCHE-10000178348

PATIENT
  Sex: Female

DRUGS (12)
  1. XOLAIR [Suspect]
     Active Substance: OMALIZUMAB
     Indication: Psoriatic arthropathy
     Route: 058
  2. XOLAIR [Suspect]
     Active Substance: OMALIZUMAB
  3. TRAMADOL [Concomitant]
     Active Substance: TRAMADOL
  4. TOPIRAMATE [Concomitant]
     Active Substance: TOPIRAMATE
  5. MONTELUKAST [Concomitant]
     Active Substance: MONTELUKAST
  6. FUROSEMIDE [Concomitant]
     Active Substance: FUROSEMIDE
  7. EPINEPHRINE [Concomitant]
     Active Substance: EPINEPHRINE
  8. DULOXETINE [Concomitant]
     Active Substance: DULOXETINE
  9. PEPCID AC [Concomitant]
     Active Substance: FAMOTIDINE
  10. DEXILANT [Concomitant]
     Active Substance: DEXLANSOPRAZOLE
  11. STELARA [Concomitant]
     Active Substance: USTEKINUMAB
  12. PREGABALIN [Concomitant]
     Active Substance: PREGABALIN

REACTIONS (2)
  - Off label use [Unknown]
  - Mouth ulceration [Unknown]
